FAERS Safety Report 8003990-3 (Version None)
Quarter: 2011Q4

REPORT INFORMATION
  Report Type: 
  Country: None (occurrence: None)
  Receive Date: 20111222
  Receipt Date: 20111215
  Transmission Date: 20120403
  Serious: Yes (Hospitalization)
  Sender: FDA-Public Use
  Company Number: GB-ROCHE-1022989

PATIENT
  Sex: Male

DRUGS (2)
  1. AVASTIN [Suspect]
     Indication: RECTAL CANCER RECURRENT
     Route: 042
     Dates: start: 20110810, end: 20110811
  2. XELODA [Suspect]
     Indication: RECTAL CANCER RECURRENT
     Route: 048
     Dates: start: 20110810, end: 20110814

REACTIONS (2)
  - INTESTINAL PERFORATION [None]
  - WOUND SEPSIS [None]
